FAERS Safety Report 25503484 (Version 1)
Quarter: 2025Q3

REPORT INFORMATION
  Report Type: Spontaneous
  Country: JP (occurrence: JP)
  Receive Date: 20250702
  Receipt Date: 20250702
  Transmission Date: 20251021
  Serious: Yes (Death, Life-Threatening, Hospitalization, Congenital Anomaly, Other)
  Sender: Steriscience PTE
  Company Number: JP-STERISCIENCE B.V.-2025-ST-001254

PATIENT
  Sex: Female

DRUGS (4)
  1. MYCOPHENOLATE MOFETIL [Suspect]
     Active Substance: MYCOPHENOLATE MOFETIL
     Indication: Product used for unknown indication
     Route: 064
  2. TELMISARTAN [Suspect]
     Active Substance: TELMISARTAN
     Indication: Product used for unknown indication
     Route: 064
  3. IBUPROFEN [Suspect]
     Active Substance: IBUPROFEN
     Indication: Product used for unknown indication
     Route: 064
  4. DOMPERIDONE [Suspect]
     Active Substance: DOMPERIDONE
     Indication: Product used for unknown indication
     Route: 064

REACTIONS (14)
  - Mayer-Rokitansky-Kuster-Hauser syndrome [Fatal]
  - Renal aplasia [Fatal]
  - Hepatic function abnormal [Fatal]
  - Respiratory distress [Fatal]
  - Gastrointestinal haemorrhage [Fatal]
  - Congenital musculoskeletal disorder [Fatal]
  - Pulmonary malformation [Fatal]
  - Patent ductus arteriosus [Fatal]
  - Tracheo-oesophageal fistula [Fatal]
  - Oesophageal atresia [Fatal]
  - Congenital central nervous system anomaly [Fatal]
  - Intraventricular haemorrhage [Fatal]
  - Hypoxic-ischaemic encephalopathy [Fatal]
  - Foetal exposure during pregnancy [None]
